FAERS Safety Report 18490843 (Version 1)
Quarter: 2020Q4

REPORT INFORMATION
  Report Type: Spontaneous
  Country: SE (occurrence: SE)
  Receive Date: 20201111
  Receipt Date: 20201111
  Transmission Date: 20210114
  Serious: Yes (Hospitalization)
  Sender: FDA-Public Use
  Company Number: SE-BAYER-2020-236800

PATIENT
  Age: 44 Year
  Sex: Female
  Weight: 62 kg

DRUGS (1)
  1. MIRENA [Suspect]
     Active Substance: LEVONORGESTREL
     Indication: CONTRACEPTION
     Dosage: 20 ?G PER DAY, CONTINUOUSLY
     Route: 015
     Dates: start: 20200915, end: 20201006

REACTIONS (9)
  - Nausea [Unknown]
  - Headache [Unknown]
  - Pain [Unknown]
  - Alopecia [Unknown]
  - Skin disorder [Unknown]
  - Insomnia [Unknown]
  - Complication of device removal [Unknown]
  - Haemorrhage [Unknown]
  - Weight increased [Unknown]

NARRATIVE: CASE EVENT DATE: 20200915
